FAERS Safety Report 13504657 (Version 2)
Quarter: 2017Q2

REPORT INFORMATION
  Report Type: Report from Study
  Country: CO (occurrence: CO)
  Receive Date: 20170502
  Receipt Date: 20170512
  Transmission Date: 20170830
  Serious: Yes (Hospitalization)
  Sender: FDA-Public Use
  Company Number: CO-SA-2017SA057662

PATIENT
  Age: 60 Year
  Sex: Female

DRUGS (1)
  1. LEMTRADA [Suspect]
     Active Substance: ALEMTUZUMAB
     Indication: MULTIPLE SCLEROSIS
     Dosage: 12 MG (1 APPLICATION) FOR 5 DAYS
     Route: 042
     Dates: start: 20170123, end: 20170127

REACTIONS (6)
  - Pulmonary thrombosis [Recovering/Resolving]
  - Neutrophil count increased [Not Recovered/Not Resolved]
  - Chest pain [Recovered/Resolved]
  - Lymphocyte count decreased [Not Recovered/Not Resolved]
  - Thrombosis [Recovering/Resolving]
  - Monocyte count increased [Not Recovered/Not Resolved]

NARRATIVE: CASE EVENT DATE: 20170324
